FAERS Safety Report 5300547-X (Version None)
Quarter: 2007Q2

REPORT INFORMATION
  Report Type: 
  Country: None (occurrence: None)
  Receive Date: 20070418
  Receipt Date: 20070403
  Transmission Date: 20071010
  Serious: Yes (Other)
  Sender: FDA-Public Use
  Company Number: US-AMGEN-STX196733

PATIENT
  Sex: Female
  Weight: 109 kg

DRUGS (2)
  1. ENBREL [Suspect]
     Indication: PSORIASIS
     Route: 058
     Dates: start: 20040501
  2. COZAAR [Concomitant]

REACTIONS (1)
  - BREAST CANCER IN SITU [None]
